FAERS Safety Report 7230598-X (Version None)
Quarter: 2011Q1

REPORT INFORMATION
  Report Type: 
  Country: None (occurrence: None)
  Receive Date: 20110118
  Receipt Date: 20110111
  Transmission Date: 20110831
  Serious: Yes (Other)
  Sender: FDA-Public Use
  Company Number: PHHY2011BR02940

PATIENT
  Sex: Male

DRUGS (1)
  1. DIOVAN AMLO [Suspect]
     Dosage: 160/5 MG, UNK

REACTIONS (1)
  - BLOOD PRESSURE INCREASED [None]
